FAERS Safety Report 8516218-2 (Version None)
Quarter: 2012Q3

REPORT INFORMATION
  Report Type: 
  Country: None (occurrence: None)
  Receive Date: 20120717
  Receipt Date: 20120710
  Transmission Date: 20120928
  Serious: Yes (Life-Threatening, Hospitalization)
  Sender: FDA-Public Use
  Company Number: US-009507513-1207USA002452

PATIENT

DRUGS (3)
  1. PRIMAXIN [Suspect]
     Indication: URINARY TRACT INFECTION
  2. CEFEPIME [Concomitant]
     Indication: URINARY TRACT INFECTION
  3. VANCOMYCIN [Concomitant]
     Indication: URINARY TRACT INFECTION

REACTIONS (1)
  - DELIRIUM [None]
